FAERS Safety Report 7414711-7 (Version None)
Quarter: 2011Q2

REPORT INFORMATION
  Report Type: 
  Country: None (occurrence: None)
  Receive Date: 20110414
  Receipt Date: 20091122
  Transmission Date: 20111010
  Serious: Yes (Death, Other)
  Sender: FDA-Public Use
  Company Number: US-BAYER-200939866NA

PATIENT
  Age: 68 Year
  Sex: Female
  Weight: 72.562 kg

DRUGS (12)
  1. TRASYLOL [Suspect]
     Indication: CORONARY ARTERY BYPASS
     Route: 042
     Dates: start: 20061017
  2. LIPITOR [Concomitant]
     Dosage: 10 MG, QD
     Route: 048
  3. GLIPIZIDE [Concomitant]
     Dosage: 10 MG, BID
     Route: 048
  4. ACETYLSALICYLIC ACID SRT [Concomitant]
     Dosage: 81 MG, QD
     Route: 048
  5. LISINOPRIL [Concomitant]
     Dosage: 40 MG, QD
     Route: 048
  6. LASIX [Concomitant]
  7. HYDROCHLOROTHIAZIDE [Concomitant]
     Dosage: 25 MG, QD
     Route: 048
  8. NORVASC [Concomitant]
     Dosage: 10 MG, QD
     Route: 048
  9. TOPROL-XL [Concomitant]
     Dosage: 50 MG, QD
     Route: 048
  10. SYNTHROID [Concomitant]
     Dosage: 75 MCG DAILY
     Route: 048
  11. LOVENOX [Concomitant]
     Dosage: 90 MG, BID
     Route: 058
  12. ZOCOR [Concomitant]
     Dosage: 20 MG, QD
     Route: 048

REACTIONS (13)
  - ANXIETY [None]
  - INJURY [None]
  - RENAL IMPAIRMENT [None]
  - RENAL INJURY [None]
  - UNEVALUABLE EVENT [None]
  - ANHEDONIA [None]
  - RENAL FAILURE [None]
  - DEATH [None]
  - PAIN [None]
  - MULTI-ORGAN FAILURE [None]
  - EMOTIONAL DISTRESS [None]
  - FEAR [None]
  - STRESS [None]
